FAERS Safety Report 7226870-X (Version None)
Quarter: 2011Q1

REPORT INFORMATION
  Report Type: 
  Country: None (occurrence: None)
  Receive Date: 20110111
  Receipt Date: 20110111
  Transmission Date: 20110831
  Serious: No
  Sender: FDA-Public Use
  Company Number: None

PATIENT
  Age: 55 Year
  Sex: Female
  Weight: 59.8748 kg

DRUGS (2)
  1. PROPRANOLOL [Suspect]
     Dosage: SEE ATTACHED
  2. TERFENADINE [Suspect]
     Dosage: SEE ATTACHED

REACTIONS (6)
  - UNEVALUABLE EVENT [None]
  - DEPRESSION [None]
  - URINARY TRACT INFECTION [None]
  - ULCER [None]
  - INSOMNIA [None]
  - SUPRAVENTRICULAR TACHYCARDIA [None]
